FAERS Safety Report 18050141 (Version 1)
Quarter: 2020Q3

REPORT INFORMATION
  Report Type: Spontaneous
  Country: US (occurrence: US)
  Receive Date: 20200721
  Receipt Date: 20200721
  Transmission Date: 20201103
  Serious: Yes (Hospitalization, Other)
  Sender: FDA-Public Use
  Company Number: US-009507513-2007USA007295

PATIENT
  Age: 85 Year
  Sex: Female

DRUGS (2)
  1. DIFICID [Suspect]
     Active Substance: FIDAXOMICIN
     Indication: CLOSTRIDIUM DIFFICILE INFECTION
     Dosage: 200 MILLIGRAM BY MOUTH 2 TIMES A DAY
     Route: 048
     Dates: start: 20200710
  2. DIFICID [Suspect]
     Active Substance: FIDAXOMICIN
     Indication: CLOSTRIDIUM DIFFICILE INFECTION
     Dosage: UNK
     Dates: start: 2018

REACTIONS (6)
  - Dysphagia [Unknown]
  - Wrong technique in product usage process [Unknown]
  - Sepsis [Recovering/Resolving]
  - Splenic rupture [Recovering/Resolving]
  - Urinary tract infection [Recovering/Resolving]
  - Clostridium difficile infection [Recovering/Resolving]

NARRATIVE: CASE EVENT DATE: 202007
